FAERS Safety Report 9941154 (Version 1)
Quarter: 2014Q1

REPORT INFORMATION
  Report Type: Report from Study
  Country: US (occurrence: US)
  Receive Date: 20140303
  Receipt Date: 20140303
  Transmission Date: 20141002
  Serious: No
  Sender: FDA-Public Use
  Company Number: US-ABBVIE-13P-163-1039856-00

PATIENT
  Age: 29 Year
  Sex: Male

DRUGS (2)
  1. HUMIRA [Suspect]
     Indication: ANKYLOSING SPONDYLITIS
     Route: 058
  2. OMNICEF [Suspect]
     Indication: EAR INFECTION

REACTIONS (3)
  - Pharyngeal oedema [Recovering/Resolving]
  - Ear infection [Not Recovered/Not Resolved]
  - Rash [Unknown]
